FAERS Safety Report 4735794-9 (Version None)
Quarter: 2005Q3

REPORT INFORMATION
  Report Type: 
  Country: None (occurrence: None)
  Receive Date: 20050802
  Receipt Date: 20050719
  Transmission Date: 20060218
  Serious: Yes (Death, Hospitalization, Other)
  Sender: FDA-Public Use
  Company Number: US-2005-000270

PATIENT
  Age: 72 Year
  Sex: Female

DRUGS (8)
  1. BETASERON [Suspect]
     Indication: RELAPSING-REMITTING MULTIPLE SCLEROSIS
     Dates: start: 19940706, end: 20040804
  2. BACLOFEN [Concomitant]
  3. LACTULOSE (LACTULOSE0 [Concomitant]
  4. PAXIL [Concomitant]
  5. DEPAKOTE (ACETYLSALICYLIC ACID) [Concomitant]
  6. DITROPAN   /SCH/ (OXYBUTYNIN HYDROCHLORIDE) [Concomitant]
  7. PREVACID ILANSOPRAZOLE) [Concomitant]
  8. SYNTHROID [Concomitant]

REACTIONS (3)
  - COLITIS ISCHAEMIC [None]
  - RENAL FAILURE [None]
  - SEPSIS [None]
